FAERS Safety Report 4804506-2 (Version None)
Quarter: 2005Q4

REPORT INFORMATION
  Report Type: 
  Country: None (occurrence: None)
  Receive Date: 20051018
  Receipt Date: 20051018
  Transmission Date: 20060501
  Serious: Yes (Other)
  Sender: FDA-Public Use
  Company Number: None

PATIENT
  Sex: Male
  Weight: 88.4514 kg

DRUGS (3)
  1. DIFFERIN [Suspect]
     Indication: ACNE
     Dosage: ONCE DAILY CUTANEOUS
     Route: 003
     Dates: start: 20041010, end: 20051017
  2. ALLEGRA [Concomitant]
  3. NEXIUM [Concomitant]

REACTIONS (2)
  - ALOPECIA [None]
  - HYPOTRICHOSIS [None]
